FAERS Safety Report 25215402 (Version 3)
Quarter: 2025Q3

REPORT INFORMATION
  Report Type: Spontaneous
  Country: EU (occurrence: EU)
  Receive Date: 20250418
  Receipt Date: 20250730
  Transmission Date: 20251021
  Serious: Yes (Other)
  Sender: NOVARTIS
  Company Number: EU-002147023-NVSC2025IT062140

PATIENT
  Age: 72 Year
  Sex: Male

DRUGS (3)
  1. INCLISIRAN [Suspect]
     Active Substance: INCLISIRAN
     Indication: Dyslipidaemia
     Route: 065
  2. ROSUVASTATIN [Concomitant]
     Active Substance: ROSUVASTATIN
     Indication: Hypertension
     Route: 065
  3. EZETIMIBE [Concomitant]
     Active Substance: EZETIMIBE
     Indication: Dyslipidaemia
     Dosage: 10 MG, QD
     Route: 065

REACTIONS (4)
  - Endocarditis fibroplastica [Recovering/Resolving]
  - Dyspnoea [Recovering/Resolving]
  - Wheezing [Recovering/Resolving]
  - Hypersensitivity [Recovering/Resolving]
